FAERS Safety Report 7624788-1 (Version None)
Quarter: 2011Q3

REPORT INFORMATION
  Report Type: 
  Country: None (occurrence: None)
  Receive Date: 20110720
  Receipt Date: 20081215
  Transmission Date: 20111222
  Serious: Yes (Other)
  Sender: FDA-Public Use
  Company Number: US-BAYER-200838217NA

PATIENT
  Age: 63 Year
  Sex: Male
  Weight: 93 kg

DRUGS (17)
  1. METOPROLOL TARTRATE [Concomitant]
  2. MINOXIDIL [Concomitant]
  3. DIATEK [Concomitant]
  4. OPTIMARK [Suspect]
     Indication: NUCLEAR MAGNETIC RESONANCE IMAGING
  5. MAGNEVIST [Suspect]
     Indication: NUCLEAR MAGNETIC RESONANCE IMAGING
     Dosage: UNK UNK, ONCE
     Dates: start: 20030929
  6. OMNISCAN [Suspect]
     Indication: NUCLEAR MAGNETIC RESONANCE IMAGING
  7. MULTIHANCE [Suspect]
     Indication: NUCLEAR MAGNETIC RESONANCE IMAGING
  8. RENAGEL [Concomitant]
  9. ALLOPURINOL [Concomitant]
  10. PROHANCE [Suspect]
     Indication: NUCLEAR MAGNETIC RESONANCE IMAGING
  11. NORVASC [Concomitant]
  12. INDOCIN [Concomitant]
  13. MAGNEVIST [Suspect]
  14. LISINOPRIL [Concomitant]
  15. EPOGEN [Concomitant]
  16. ATENOLOL [Concomitant]
  17. SODIUM BICARBONATE [Concomitant]

REACTIONS (6)
  - PAIN [None]
  - ANHEDONIA [None]
  - NEPHROGENIC SYSTEMIC FIBROSIS [None]
  - FIBROSIS [None]
  - EMOTIONAL DISTRESS [None]
  - ANXIETY [None]
